FAERS Safety Report 23060684 (Version 4)
Quarter: 2024Q3

REPORT INFORMATION
  Report Type: Spontaneous
  Country: CH (occurrence: CH)
  Receive Date: 20231012
  Receipt Date: 20240912
  Transmission Date: 20241017
  Serious: Yes (Hospitalization, Other)
  Sender: PFIZER
  Company Number: CH-PFIZER INC-PV202300155833

PATIENT
  Sex: Female
  Weight: 55 kg

DRUGS (9)
  1. LORAZEPAM [Suspect]
     Active Substance: LORAZEPAM
     Indication: Fear
     Dosage: 7 TABLETS OF TEMESTA 1.0 MG DAILY
  2. LORAZEPAM [Suspect]
     Active Substance: LORAZEPAM
     Indication: Sleep disorder
     Dosage: 8 DF, DAILY
  3. VALIUM [Suspect]
     Active Substance: DIAZEPAM
     Indication: Sleep disorder
     Dosage: UNK
  4. MIDAZOLAM HYDROCHLORIDE [Suspect]
     Active Substance: MIDAZOLAM HYDROCHLORIDE
     Dosage: UNK
  5. RISPERDAL [Suspect]
     Active Substance: RISPERIDONE
     Dosage: UNK
  6. XANAX [Suspect]
     Active Substance: ALPRAZOLAM
     Dosage: UNK
  7. ZOLPIDEM TARTRATE [Suspect]
     Active Substance: ZOLPIDEM TARTRATE
     Dosage: UNK
  8. TRAZODONE HYDROCHLORIDE [Suspect]
     Active Substance: TRAZODONE HYDROCHLORIDE
     Dosage: UNK
  9. REMERON [Suspect]
     Active Substance: MIRTAZAPINE
     Dosage: UNK

REACTIONS (26)
  - Suicidal ideation [Unknown]
  - Drug dependence [Unknown]
  - Angina pectoris [Unknown]
  - Memory impairment [Unknown]
  - Myalgia [Unknown]
  - Dizziness [Unknown]
  - Decreased appetite [Unknown]
  - Anger [Unknown]
  - Bladder disorder [Unknown]
  - Headache [Unknown]
  - Bone pain [Unknown]
  - Visual acuity reduced [Unknown]
  - Disorientation [Unknown]
  - Phobia [Unknown]
  - Emotional disorder [Unknown]
  - Insomnia [Unknown]
  - Asthenia [Unknown]
  - Respiratory rate increased [Unknown]
  - Confusional state [Unknown]
  - Fall [Unknown]
  - Dyskinesia [Unknown]
  - Aggression [Unknown]
  - Arthralgia [Unknown]
  - Fatigue [Unknown]
  - Feeling of despair [Unknown]
  - General physical condition [Unknown]
